FAERS Safety Report 8452722-3 (Version None)
Quarter: 2012Q2

REPORT INFORMATION
  Report Type: 
  Country: None (occurrence: None)
  Receive Date: 20120620
  Receipt Date: 20120611
  Transmission Date: 20120825
  Serious: Yes (Hospitalization)
  Sender: FDA-Public Use
  Company Number: US-VERTEX PHARMACEUTICALS INC.-AE-2012-004535

PATIENT
  Sex: Female

DRUGS (4)
  1. RIBAVIRIN [Concomitant]
     Indication: HEPATITIS C
     Route: 048
     Dates: start: 20120220, end: 20120316
  2. PEG-INTRON [Concomitant]
     Indication: HEPATITIS C
     Route: 058
     Dates: start: 20120220, end: 20120316
  3. INCIVEK [Suspect]
     Indication: HEPATITIS C
     Route: 048
  4. INCIVEK [Suspect]
     Route: 048
     Dates: start: 20120220, end: 20120316

REACTIONS (8)
  - ANXIETY [None]
  - PANCREATITIS [None]
  - NEUTROPENIA [None]
  - ASTHENIA [None]
  - OEDEMA PERIPHERAL [None]
  - ANAEMIA [None]
  - FATIGUE [None]
  - ALOPECIA [None]
